FAERS Safety Report 6333413-1 (Version None)
Quarter: 2009Q3

REPORT INFORMATION
  Report Type: 
  Country: None (occurrence: None)
  Receive Date: 20090828
  Receipt Date: 20090817
  Transmission Date: 20100115
  Serious: Yes (Other)
  Sender: FDA-Public Use
  Company Number: US-ELI_LILLY_AND_COMPANY-US200908003974

PATIENT
  Age: 45 Year
  Sex: Male

DRUGS (6)
  1. STRATTERA [Suspect]
     Indication: ATTENTION DEFICIT/HYPERACTIVITY DISORDER
     Dosage: 40 MG, UNKNOWN
     Route: 065
     Dates: start: 20090801
  2. STRATTERA [Suspect]
     Dosage: 65 MG, UNKNOWN
     Route: 065
     Dates: start: 20090813
  3. STRATTERA [Suspect]
     Dosage: 40 MG, UNKNOWN
     Route: 065
     Dates: start: 20090801
  4. LISINOPRIL [Concomitant]
     Dosage: 10 MG, UNKNOWN
     Route: 065
  5. ATENOLOL [Concomitant]
     Dosage: 25 MG, UNKNOWN
     Route: 065
  6. HYDROCHLOROTHIAZIDE [Concomitant]
     Dosage: 25 MG, UNKNOWN
     Route: 065

REACTIONS (9)
  - ABNORMAL SENSATION IN EYE [None]
  - ADVERSE DRUG REACTION [None]
  - ASTHENIA [None]
  - DYSKINESIA [None]
  - EXTRAOCULAR MUSCLE DISORDER [None]
  - EYE MOVEMENT DISORDER [None]
  - FEELING ABNORMAL [None]
  - HYPOAESTHESIA FACIAL [None]
  - LACRIMATION INCREASED [None]
